FAERS Safety Report 9135574 (Version 1)
Quarter: 2013Q1

REPORT INFORMATION
  Report Type: Spontaneous
  Country: US (occurrence: US)
  Receive Date: 20130219
  Receipt Date: 20130219
  Transmission Date: 20140127
  Serious: No
  Sender: FDA-Public Use
  Company Number: US-BRISTOL-MYERS SQUIBB COMPANY-16770893

PATIENT
  Age: 82 Year
  Sex: Female
  Weight: 68.03 kg

DRUGS (3)
  1. ORENCIA [Suspect]
     Indication: RHEUMATOID ARTHRITIS
     Dosage: 1 DF : 4 DOSES?DOSE:15 DAYS APART FOR 4 DOSES, THEN ONCE A MONTH
     Route: 042
     Dates: start: 201206
  2. METHOTREXATE [Concomitant]
  3. CELEBREX [Concomitant]

REACTIONS (2)
  - Spinal pain [Recovering/Resolving]
  - Gait disturbance [Recovering/Resolving]
